FAERS Safety Report 18862612 (Version 4)
Quarter: 2025Q1

REPORT INFORMATION
  Report Type: Spontaneous
  Country: US (occurrence: US)
  Receive Date: 20210209
  Receipt Date: 20250219
  Transmission Date: 20250409
  Serious: Yes (Other)
  Sender: PURDUE
  Company Number: US-PURDUE-USA-2020-0183447

PATIENT
  Sex: Male

DRUGS (5)
  1. BUPRENORPHINE [Suspect]
     Active Substance: BUPRENORPHINE
     Indication: Product used for unknown indication
     Route: 062
  2. BUPRENORPHINE [Suspect]
     Active Substance: BUPRENORPHINE
     Indication: Gout
     Dosage: 8 MMHG, BID
     Route: 062
     Dates: start: 201101
  3. BUPRENORPHINE [Suspect]
     Active Substance: BUPRENORPHINE
     Route: 062
  4. MORPHINE SULFATE [Suspect]
     Active Substance: MORPHINE SULFATE
     Indication: Gout
     Route: 048
     Dates: start: 200901, end: 201101
  5. SUBOXONE [Suspect]
     Active Substance: BUPRENORPHINE HYDROCHLORIDE\NALOXONE HYDROCHLORIDE
     Indication: Gout
     Route: 065
     Dates: start: 201101

REACTIONS (4)
  - Drug dependence [Not Recovered/Not Resolved]
  - General physical health deterioration [Unknown]
  - Pain [Unknown]
  - Drug withdrawal syndrome [Unknown]
